FAERS Safety Report 18044327 (Version 1)
Quarter: 2020Q3

REPORT INFORMATION
  Report Type: Spontaneous
  Country: CA (occurrence: CA)
  Receive Date: 20200720
  Receipt Date: 20200720
  Transmission Date: 20201103
  Serious: Yes (Hospitalization)
  Sender: FDA-Public Use
  Company Number: CA-PFIZER INC-2019437221

PATIENT
  Age: 39 Year
  Sex: Female

DRUGS (5)
  1. XELJANZ [Suspect]
     Active Substance: TOFACITINIB CITRATE
     Dosage: 5 MG, 2X/DAY
     Route: 048
     Dates: start: 2019
  2. XELJANZ [Suspect]
     Active Substance: TOFACITINIB CITRATE
     Indication: COLITIS ULCERATIVE
     Dosage: 10 MG, TWICE A DAY
     Route: 048
     Dates: start: 20190808, end: 201910
  3. 6?MP [Concomitant]
     Active Substance: MERCAPTOPURINE
     Dosage: UNK
  4. XELJANZ [Suspect]
     Active Substance: TOFACITINIB CITRATE
     Dosage: 10 MG, ONCE A DAY
     Route: 048
     Dates: start: 201910, end: 201910
  5. XELJANZ [Suspect]
     Active Substance: TOFACITINIB CITRATE
     Dosage: 10 MG, UNK
     Route: 048
     Dates: start: 201910, end: 20191007

REACTIONS (3)
  - Condition aggravated [Not Recovered/Not Resolved]
  - Intentional product use issue [Unknown]
  - Condition aggravated [Unknown]
